FAERS Safety Report 14448952 (Version 4)
Quarter: 2022Q4

REPORT INFORMATION
  Report Type: Spontaneous
  Country: FR (occurrence: FR)
  Receive Date: 20180126
  Receipt Date: 20221007
  Transmission Date: 20230113
  Serious: Yes (Other)
  Sender: FDA-Public Use
  Company Number: FR-GKKIN-20180108-PI321461

PATIENT
  Age: 18 Year
  Sex: Male

DRUGS (3)
  1. MINOCYCLINE [Suspect]
     Active Substance: MINOCYCLINE HYDROCHLORIDE
     Indication: Acne
     Dosage: 50 MG, QD (FROM THE AGE OF 15 YEARS)
     Route: 065
  2. MINOCYCLINE [Suspect]
     Active Substance: MINOCYCLINE HYDROCHLORIDE
     Dosage: 100 MILLIGRAM, QD
     Route: 065
  3. ASPIRIN [Concomitant]
     Active Substance: ASPIRIN
     Indication: Lateral medullary syndrome
     Dosage: UNK
     Route: 065

REACTIONS (13)
  - Antiphospholipid syndrome [Recovered/Resolved]
  - Diplopia [Recovered/Resolved]
  - Infarction [Recovered/Resolved]
  - Beta-2 glycoprotein antibody positive [Recovered/Resolved]
  - IIIrd nerve disorder [Recovered/Resolved]
  - Horner^s syndrome [Recovered/Resolved]
  - Hypoaesthesia [Recovered/Resolved]
  - Dysphagia [Recovered/Resolved]
  - Cerebrovascular accident [Recovered/Resolved]
  - Lateral medullary syndrome [Unknown]
  - Vertigo [Recovered/Resolved]
  - Antiphospholipid antibodies positive [Recovered/Resolved]
  - Headache [Recovered/Resolved]
